FAERS Safety Report 5956298-1 (Version None)
Quarter: 2008Q4

REPORT INFORMATION
  Report Type: 
  Country: None (occurrence: None)
  Receive Date: 20081118
  Receipt Date: 20081111
  Transmission Date: 20090506
  Serious: Yes (Death, Hospitalization)
  Sender: FDA-Public Use
  Company Number: US-ROCHE-596601

PATIENT
  Sex: Female

DRUGS (3)
  1. XELODA [Suspect]
     Indication: BREAST CANCER METASTATIC
     Route: 065
  2. TYVERB [Suspect]
     Indication: BREAST CANCER METASTATIC
     Route: 048
  3. TYVERB [Suspect]
     Dosage: DOSE REDUCED
     Route: 048

REACTIONS (2)
  - BREAST CANCER METASTATIC [None]
  - DIARRHOEA [None]
